FAERS Safety Report 8273007-4 (Version None)
Quarter: 2012Q2

REPORT INFORMATION
  Report Type: 
  Country: None (occurrence: None)
  Receive Date: 20120411
  Receipt Date: 20120403
  Transmission Date: 20120825
  Serious: Yes (Hospitalization, Disabling)
  Sender: FDA-Public Use
  Company Number: US-BAYER-2011-090605

PATIENT
  Age: 44 Year
  Sex: Female
  Weight: 113 kg

DRUGS (24)
  1. CALCIUM VIT D [Concomitant]
  2. CRESTOR [Concomitant]
  3. MULTI-VITAMIN [Concomitant]
  4. YASMIN [Suspect]
     Indication: CONTRACEPTION
     Dosage: UNK
     Route: 048
     Dates: start: 20050501, end: 20090915
  5. CYTOXAN [Concomitant]
  6. FOLIC ACID [Concomitant]
     Dosage: 1 MG, UNK
     Dates: start: 20090901
  7. OMEPRAZOLE [Concomitant]
  8. PRILOSEC [Concomitant]
  9. MEVACOR [Concomitant]
  10. IBUPROFEN [Concomitant]
  11. CLONAZEPAM [Concomitant]
  12. FOSAMAX [Concomitant]
  13. BACTRIM DS [Concomitant]
     Dosage: 1 TAB EVERY MON, WED, AND FRI
  14. MYCOPHENOLATE MOFETIL (CELLCEPT) [Concomitant]
     Dosage: 500 MG, UNK
     Dates: start: 20090901
  15. LIPITOR [Concomitant]
  16. NORVASC [Concomitant]
     Dosage: 2.5 MG, UNK
     Dates: start: 20090901
  17. PREDNISOLONE [Concomitant]
  18. CELEXA [Concomitant]
  19. OXYGEN [Concomitant]
  20. RESTASIS [Concomitant]
     Dosage: 0.05 %, UNK
     Dates: start: 20090901
  21. CYMBALTA [Concomitant]
  22. ZITHROMAX [Concomitant]
  23. ESTER C [Concomitant]
  24. REMERON [Concomitant]
     Dosage: 15 MG, UNK
     Dates: start: 20090901

REACTIONS (8)
  - PULMONARY EMBOLISM [None]
  - DEEP VEIN THROMBOSIS [None]
  - PAIN [None]
  - EMOTIONAL DISTRESS [None]
  - QUALITY OF LIFE DECREASED [None]
  - INJURY [None]
  - GENERAL PHYSICAL HEALTH DETERIORATION [None]
  - ANXIETY [None]
